FAERS Safety Report 4968733-6 (Version None)
Quarter: 2006Q2

REPORT INFORMATION
  Report Type: 
  Country: None (occurrence: None)
  Receive Date: 20060405
  Receipt Date: 20060322
  Transmission Date: 20061013
  Serious: Yes (Hospitalization, Other)
  Sender: FDA-Public Use
  Company Number: 2006015478

PATIENT
  Age: 58 Year
  Sex: Male
  Weight: 49.8 kg

DRUGS (14)
  1. SOLU-MEDROL [Suspect]
     Indication: STATUS ASTHMATICUS
     Dosage: 1 GRAM (1 GRAM,  1 IN 1 D), INTRAVENOUS
     Route: 042
     Dates: start: 20060118, end: 20060120
  2. SOLU-CORTEF [Suspect]
     Indication: STATUS ASTHMATICUS
     Dosage: 1 IN 1 D, INTRAVENOUS
     Route: 042
     Dates: start: 20060118
  3. CONTRAST MEDIA (CONTRAST MEDIA) [Suspect]
     Indication: PREMEDICATION
     Dosage: (1 IN 1 D)
     Dates: start: 20060117
  4. GASCON (DIMETICONE) [Suspect]
     Indication: PREMEDICATION
     Dosage: (1 IN 1 D),ORAL
     Route: 048
     Dates: start: 20060118
  5. HYOSCINE HBR HYT [Suspect]
     Indication: PREMEDICATION
     Dosage: ( 1 IN 1 D), INTRAVENOUS
     Route: 042
     Dates: start: 20060118
  6. XYLOCAINE VISCOUS [Suspect]
     Indication: PREMEDICATION
     Dosage: 5 MG (1 IN 1 D),ORAL
     Route: 048
     Dates: start: 20060118
  7. MIRACLID (ULINASTATIN) [Suspect]
     Indication: PREMEDICATION
     Dosage: (1 IN 1 D), INTRAVENOUS
     Route: 042
     Dates: start: 20060118
  8. ANEXATE (FLUMAZENIL) [Concomitant]
  9. DORMICUM FOR INJECTION (MIDAZOLAM HYDROCHLORIDE) [Concomitant]
  10. NALOXONE [Concomitant]
  11. CATABON (DOPAMINE HYDROCHLORIDE) [Concomitant]
  12. BOSMIN (EPINEPHRINE HYDROCHLORIDE) [Concomitant]
  13. SOSEGON (PENTAZOCINE) [Concomitant]
  14. AMINOPHYLLIN [Concomitant]

REACTIONS (6)
  - ANAPHYLACTIC SHOCK [None]
  - DEPRESSED LEVEL OF CONSCIOUSNESS [None]
  - HYPOXIC ENCEPHALOPATHY [None]
  - PROCEDURAL COMPLICATION [None]
  - RESPIRATORY ARREST [None]
  - STATUS ASTHMATICUS [None]
